FAERS Safety Report 10003670 (Version 2)
Quarter: 2014Q2

REPORT INFORMATION
  Report Type: Spontaneous
  Country: SE (occurrence: SE)
  Receive Date: 20140312
  Receipt Date: 20140404
  Transmission Date: 20141212
  Serious: Yes (Other)
  Sender: FDA-Public Use
  Company Number: SE-ABBVIE-14P-150-1209108-00

PATIENT
  Sex: Female

DRUGS (5)
  1. HUMIRA [Suspect]
     Indication: SPONDYLITIS
     Dates: end: 20140222
  2. OMEPRAZOL [Concomitant]
     Indication: PRODUCT USED FOR UNKNOWN INDICATION
  3. SOBRIL [Concomitant]
     Indication: PRODUCT USED FOR UNKNOWN INDICATION
  4. ALVEDON [Concomitant]
     Indication: PRODUCT USED FOR UNKNOWN INDICATION
  5. VOLTAREN [Concomitant]
     Indication: PRODUCT USED FOR UNKNOWN INDICATION

REACTIONS (1)
  - Blindness [Not Recovered/Not Resolved]
